FAERS Safety Report 17388884 (Version 1)
Quarter: 2020Q1

REPORT INFORMATION
  Report Type: Spontaneous
  Country: FR (occurrence: FR)
  Receive Date: 20200206
  Receipt Date: 20200206
  Transmission Date: 20200409
  Serious: Yes (Hospitalization)
  Sender: FDA-Public Use
  Company Number: FR-BAXTER-2020BAX002119

PATIENT
  Age: 62 Year
  Sex: Female
  Weight: 50.5 kg

DRUGS (11)
  1. VALACYCLOVIR [Suspect]
     Active Substance: VALACYCLOVIR HYDROCHLORIDE
     Indication: VIRAL INFECTION
     Route: 048
     Dates: start: 20190909, end: 20190914
  2. LERCANIDIPINE ARROW [Suspect]
     Active Substance: LERCANIDIPINE
     Indication: HYPERTENSION
     Dosage: SCORED FILM-COATED TABLET
     Route: 048
     Dates: start: 20190910, end: 20190914
  3. URAPIDIL [Concomitant]
     Active Substance: URAPIDIL
     Indication: PRODUCT USED FOR UNKNOWN INDICATION
     Route: 065
  4. VELCADE [Suspect]
     Active Substance: BORTEZOMIB
     Indication: GLOMERULONEPHRITIS
     Dosage: POWDER FOR SOLUTION FOR INJECTION
     Route: 058
     Dates: start: 20190718, end: 20190819
  5. PRIMPERAN [Suspect]
     Active Substance: METOCLOPRAMIDE HYDROCHLORIDE
     Indication: PROPHYLAXIS OF NAUSEA AND VOMITING
     Dosage: 10 MG/2 ML, SOLUTION FOR INJECTION IN AMPOULE
     Route: 042
     Dates: start: 20190910, end: 20190918
  6. CLAMOXYL (AMOXICILLIN TRIHYDRATE) [Suspect]
     Active Substance: AMOXICILLIN
     Indication: BACTERIAL INFECTION
     Route: 048
     Dates: start: 20190909, end: 20190917
  7. NEOFORDEX [Suspect]
     Active Substance: DEXAMETHASONE ACETATE
     Indication: GLOMERULONEPHRITIS
     Dosage: TABLET
     Route: 048
     Dates: start: 20190718, end: 20190902
  8. ATORVASTATINE [Concomitant]
     Active Substance: ATORVASTATIN
     Indication: PRODUCT USED FOR UNKNOWN INDICATION
     Route: 065
  9. PANTOPRAZOLE [Concomitant]
     Active Substance: PANTOPRAZOLE
     Indication: PRODUCT USED FOR UNKNOWN INDICATION
     Route: 065
  10. ENDOXAN 50 MG, COMPRIM? ENROB? [Suspect]
     Active Substance: CYCLOPHOSPHAMIDE
     Indication: GLOMERULONEPHRITIS
     Route: 048
     Dates: start: 20190718, end: 20190819
  11. IMOVANE [Suspect]
     Active Substance: ZOPICLONE
     Indication: PRODUCT USED FOR UNKNOWN INDICATION
     Dosage: SCORED FILM-COATED TABLET
     Route: 048
     Dates: start: 20190909, end: 20190917

REACTIONS (2)
  - Posterior reversible encephalopathy syndrome [Recovered/Resolved]
  - Subarachnoid haemorrhage [Recovered/Resolved]

NARRATIVE: CASE EVENT DATE: 20190915
